FAERS Safety Report 7917243-2 (Version None)
Quarter: 2011Q4

REPORT INFORMATION
  Report Type: 
  Country: None (occurrence: None)
  Receive Date: 20111116
  Receipt Date: 20111103
  Transmission Date: 20120403
  Serious: Yes (Other)
  Sender: FDA-Public Use
  Company Number: PHEH2010US03510

PATIENT
  Sex: Male

DRUGS (18)
  1. GLYBURIDE [Concomitant]
  2. WARFARIN SODIUM [Concomitant]
  3. METOPROLOL SUCCINATE [Concomitant]
  4. NOVOLOG [Concomitant]
  5. PENICILLIN [Concomitant]
  6. ZOMETA [Suspect]
  7. OMEPRAZOLE [Concomitant]
  8. CHEMOTHERAPEUTICS [Concomitant]
  9. ACCURETIC [Concomitant]
  10. MECLIZINE [Concomitant]
  11. MOTRIN [Concomitant]
  12. NIASPAN [Concomitant]
  13. AVANDIA [Concomitant]
  14. LANTUS [Concomitant]
  15. GEMFIBROZIL [Concomitant]
  16. AMITRIPTYLINE HCL [Concomitant]
  17. METFORMIN HCL [Concomitant]
  18. RADIATION THERAPY [Concomitant]

REACTIONS (18)
  - PARTNER STRESS [None]
  - RADICULOPATHY [None]
  - OSTEOLYSIS [None]
  - NEPHROLITHIASIS [None]
  - NEUROPATHY PERIPHERAL [None]
  - HEART RATE IRREGULAR [None]
  - PAIN [None]
  - OVERDOSE [None]
  - OSTEONECROSIS OF JAW [None]
  - ARTHRALGIA [None]
  - ANAEMIA [None]
  - NEOPLASM MALIGNANT [None]
  - INFECTION [None]
  - DEFORMITY [None]
  - PALPITATIONS [None]
  - INTERVERTEBRAL DISC DEGENERATION [None]
  - SLEEP APNOEA SYNDROME [None]
  - LYMPHOMA [None]
